FAERS Safety Report 8448231-8 (Version None)
Quarter: 2012Q2

REPORT INFORMATION
  Report Type: 
  Country: None (occurrence: None)
  Receive Date: 20120619
  Receipt Date: 20120611
  Transmission Date: 20120825
  Serious: Yes (Other)
  Sender: FDA-Public Use
  Company Number: PHHY2012IR050005

PATIENT
  Age: 37 Year
  Sex: Male

DRUGS (5)
  1. METHYLPREDNISOLONE [Suspect]
     Indication: RENAL TRANSPLANT
     Dosage: 2 COURSES OF METHYLPREDNISOLONE PULSES WITHIN THREE WEEKS
  2. AZATHIOPRINE [Suspect]
     Indication: RENAL TRANSPLANT
  3. MYCOPHENOLATE MOFETIL [Suspect]
     Indication: RENAL TRANSPLANT
  4. CYCLOSPORINE [Suspect]
     Indication: RENAL TRANSPLANT
  5. PREDNISOLONE [Suspect]
     Indication: RENAL TRANSPLANT

REACTIONS (5)
  - VIRAL INFECTION [None]
  - RENAL IMPAIRMENT [None]
  - PYREXIA [None]
  - BLOOD CREATININE INCREASED [None]
  - RENAL PAIN [None]
